FAERS Safety Report 11390527 (Version 1)
Quarter: 2015Q3

REPORT INFORMATION
  Report Type: Spontaneous
  Country: US (occurrence: US)
  Receive Date: 20150818
  Receipt Date: 20150818
  Transmission Date: 20151125
  Serious: No
  Sender: FDA-Public Use
  Company Number: US-ROCHE-1363717

PATIENT
  Sex: Male

DRUGS (5)
  1. PEGASYS [Suspect]
     Active Substance: PEGINTERFERON ALFA-2A
     Dosage: STOPPED
     Route: 065
     Dates: start: 201206
  2. PEGASYS [Suspect]
     Active Substance: PEGINTERFERON ALFA-2A
     Indication: CHRONIC HEPATITIS C
     Route: 058
     Dates: start: 20140318
  3. SOVALDI [Suspect]
     Active Substance: SOFOSBUVIR
     Indication: CHRONIC HEPATITIS C
     Route: 048
     Dates: start: 20140318
  4. RIBAVIRIN. [Suspect]
     Active Substance: RIBAVIRIN
     Indication: CHRONIC HEPATITIS C
     Dosage: TWO DIVIDED DOSES
     Route: 048
     Dates: start: 201206
  5. RIBAVIRIN. [Suspect]
     Active Substance: RIBAVIRIN
     Dosage: STOPPED
     Route: 065
     Dates: start: 201206

REACTIONS (9)
  - Therapeutic product ineffective [Unknown]
  - Red blood cell count decreased [Unknown]
  - Nausea [Unknown]
  - Fatigue [Unknown]
  - Contusion [Unknown]
  - Dizziness [Unknown]
  - Platelet count decreased [Unknown]
  - Vomiting [Unknown]
  - White blood cell count decreased [Unknown]
